FAERS Safety Report 6040160-2 (Version None)
Quarter: 2009Q1

REPORT INFORMATION
  Report Type: 
  Country: None (occurrence: None)
  Receive Date: 20090116
  Receipt Date: 20080310
  Transmission Date: 20090719
  Serious: No
  Sender: FDA-Public Use
  Company Number: US-BRISTOL-MYERS SQUIBB COMPANY-14028815

PATIENT
  Age: 56 Year
  Sex: Female
  Weight: 82 kg

DRUGS (22)
  1. ABILIFY [Suspect]
     Route: 048
  2. NABUMETONE [Concomitant]
  3. MULTI-VITAMIN [Concomitant]
  4. GLUCOSAMINE SULFATE [Concomitant]
  5. METAMUCIL [Concomitant]
  6. MISOPROSTOL [Concomitant]
  7. ASPIRIN [Concomitant]
  8. OXYBUTYNIN CHLORIDE [Concomitant]
  9. METHIMAZOLE [Concomitant]
  10. TRICOR [Concomitant]
  11. NIASPAN [Concomitant]
  12. NITROFURANTOIN [Concomitant]
  13. NYSTATIN [Concomitant]
  14. POLYETHYLENE GLYCOL [Concomitant]
  15. CORDRAN [Concomitant]
  16. FLUOCINONIDE [Concomitant]
     Route: 061
  17. NICOTROL [Concomitant]
     Route: 055
  18. ADVAIR DISKUS 100/50 [Concomitant]
  19. DELSYM [Concomitant]
  20. MUCINEX [Concomitant]
  21. TRAZODONE HCL [Concomitant]
  22. ONE-A-DAY [Concomitant]

REACTIONS (3)
  - BALANCE DISORDER [None]
  - GAIT DISTURBANCE [None]
  - MUSCULAR WEAKNESS [None]
